FAERS Safety Report 26139936 (Version 1)
Quarter: 2025Q4

REPORT INFORMATION
  Report Type: Spontaneous
  Country: CA (occurrence: CA)
  Receive Date: 20251210
  Receipt Date: 20251210
  Transmission Date: 20260118
  Serious: Yes (Hospitalization, Other)
  Sender: PFIZER
  Company Number: CA-PFIZER INC-202500131130

PATIENT
  Age: 56 Year
  Sex: Female

DRUGS (2)
  1. ABRILADA [Suspect]
     Active Substance: ADALIMUMAB-AFZB
     Indication: Inflammatory bowel disease
     Dosage: 40 MG, WEEKLY
     Route: 058
     Dates: start: 20230714
  2. CHOLECALCIFEROL [Concomitant]
     Active Substance: CHOLECALCIFEROL
     Dosage: UNK

REACTIONS (5)
  - Pneumonia necrotising [Recovering/Resolving]
  - Clostridium difficile infection [Recovering/Resolving]
  - Thrombocytosis [Recovering/Resolving]
  - Acute kidney injury [Recovering/Resolving]
  - Sepsis [Recovering/Resolving]
